FAERS Safety Report 7383691-5 (Version None)
Quarter: 2011Q1

REPORT INFORMATION
  Report Type: 
  Country: None (occurrence: None)
  Receive Date: 20110330
  Receipt Date: 20110322
  Transmission Date: 20110831
  Serious: Yes (Hospitalization)
  Sender: FDA-Public Use
  Company Number: HU-ROCHE-756670

PATIENT
  Sex: Male
  Weight: 83 kg

DRUGS (6)
  1. CLARITHROMYCIN [Concomitant]
     Dates: start: 20110124, end: 20110127
  2. METOCLOPRAMIDE [Concomitant]
     Dates: start: 20110124, end: 20110124
  3. OSELTAMIVIR [Suspect]
     Dosage: DOSE BLINDED, FORM: INFUSION
     Route: 051
     Dates: start: 20110125, end: 20110127
  4. SODIUM CHLORIDE [Concomitant]
     Dosage: DRUG: PHYSIOLOGIC (0.9 %) NACL INFUSION
     Route: 055
     Dates: start: 20110124, end: 20110130
  5. OSELTAMIVIR [Suspect]
     Indication: INFLUENZA
     Dosage: DOSE BLINDED, FORM: INFUSION
     Route: 042
     Dates: start: 20110125, end: 20110127
  6. ALPRAZOLAM [Concomitant]
     Dates: start: 20110124, end: 20110124

REACTIONS (1)
  - BRADYARRHYTHMIA [None]
